FAERS Safety Report 16297398 (Version 2)
Quarter: 2022Q2

REPORT INFORMATION
  Report Type: Spontaneous
  Country: NL (occurrence: NL)
  Receive Date: 20190510
  Receipt Date: 20220408
  Transmission Date: 20220721
  Serious: Yes (Hospitalization)
  Sender: FDA-Public Use
  Company Number: NL-AUROBINDO-AUR-APL-2019-024826

PATIENT
  Age: 65 Year
  Sex: Male
  Weight: 79 kg

DRUGS (1)
  1. AMLODIPINE [Suspect]
     Active Substance: AMLODIPINE BESYLATE
     Indication: Hypertension
     Dosage: 10 MILLIGRAM, ONCE A DAY(1X PER DAG 1 TABLET)
     Route: 048
     Dates: start: 20170128, end: 20180916

REACTIONS (1)
  - Heart rate irregular [Recovered/Resolved with Sequelae]

NARRATIVE: CASE EVENT DATE: 20170214
